FAERS Safety Report 9370202 (Version 1)
Quarter: 2013Q2

REPORT INFORMATION
  Report Type: Report from Study
  Country: CA (occurrence: CA)
  Receive Date: 20130626
  Receipt Date: 20130626
  Transmission Date: 20140414
  Serious: Yes (Hospitalization)
  Sender: FDA-Public Use
  Company Number: CA-JNJFOC-20130614140

PATIENT
  Age: 56 Year
  Sex: Male
  Weight: 85.2 kg

DRUGS (8)
  1. REMICADE [Suspect]
     Indication: CROHN^S DISEASE
     Dosage: THE PATIENT HAD 36 INFLIXIMAB INFUSIONS
     Route: 042
     Dates: start: 200707
  2. CALCIUM [Concomitant]
     Route: 065
  3. VITAMIN D [Concomitant]
     Route: 065
  4. MULTIVITE [Concomitant]
     Route: 065
  5. OLANZAPINE [Concomitant]
     Route: 065
  6. MIRTAZAPINE [Concomitant]
     Route: 065
  7. FOSAMAX [Concomitant]
     Route: 065
  8. EFFEXOR [Concomitant]
     Route: 065

REACTIONS (1)
  - Depression [Not Recovered/Not Resolved]
